FAERS Safety Report 12966650 (Version 1)
Quarter: 2016Q4

REPORT INFORMATION
  Report Type: Spontaneous
  Country: US (occurrence: US)
  Receive Date: 20161119
  Receipt Date: 20161119
  Transmission Date: 20170207
  Serious: No
  Sender: FDA-Public Use
  Company Number: None

PATIENT
  Age: 76 Year
  Sex: Female

DRUGS (2)
  1. CYCLOSPORINE MODIFIED CAPS 100MG MAYNE PHARMA CO [Suspect]
     Active Substance: CYCLOSPORINE
     Indication: RENAL TRANSPLANT
     Dosage: CYCLOSPORINE MODIFIED CAPS 100MG - PO - QD - EVERY MORNING
     Route: 048
     Dates: start: 19990304
  2. CYCLOSPORINE MODIFIED CAPS 25MG MAYNE PHARMA CO [Suspect]
     Active Substance: CYCLOSPORINE
     Indication: RENAL TRANSPLANT
     Dosage: CYCLOSPORINE MODIFIED CAPS - 50MG - PO - EVERY EVENING QD
     Route: 048
     Dates: start: 19990304

REACTIONS (2)
  - Product substitution issue [None]
  - Adverse reaction [None]

NARRATIVE: CASE EVENT DATE: 20161002
